FAERS Safety Report 25297283 (Version 1)
Quarter: 2025Q2

REPORT INFORMATION
  Report Type: Spontaneous
  Country: US (occurrence: US)
  Receive Date: 20250511
  Receipt Date: 20250511
  Transmission Date: 20250716
  Serious: No
  Sender: ABBVIE
  Company Number: US-ABBVIE-6275324

PATIENT
  Sex: Male

DRUGS (1)
  1. UPADACITINIB [Suspect]
     Active Substance: UPADACITINIB
     Indication: Axial spondyloarthritis
     Route: 048

REACTIONS (4)
  - Back disorder [Recovering/Resolving]
  - Wisdom teeth removal [Unknown]
  - Visual impairment [Unknown]
  - Musculoskeletal disorder [Not Recovered/Not Resolved]
